FAERS Safety Report 4688178-6 (Version None)
Quarter: 2005Q2

REPORT INFORMATION
  Report Type: 
  Country: None (occurrence: None)
  Receive Date: 20050609
  Receipt Date: 20050602
  Transmission Date: 20051028
  Serious: Yes (Hospitalization)
  Sender: FDA-Public Use
  Company Number: 214838

PATIENT
  Age: 42 Year
  Sex: Male
  Weight: 77.1 kg

DRUGS (9)
  1. XOLAIR [Suspect]
     Indication: ASTHMA
     Dosage: 300 MG, Q4W, SUBCUTANEOUS
     Route: 058
     Dates: start: 20050120, end: 20050401
  2. ASACOL [Suspect]
  3. PRILOSEC [Concomitant]
  4. SEREVENT [Concomitant]
  5. FLOVENT [Concomitant]
  6. ALBUTEROL (ALBUTEROL SULFATE, ALBUTEROL) [Concomitant]
  7. FOSAMAX [Concomitant]
  8. FLONASE [Concomitant]
  9. ACCOLATE [Concomitant]

REACTIONS (16)
  - ANTIPHOSPHOLIPID ANTIBODIES POSITIVE [None]
  - ATELECTASIS [None]
  - CHEST DISCOMFORT [None]
  - CHILLS [None]
  - DRUG HYPERSENSITIVITY [None]
  - FATIGUE [None]
  - GLOMERULONEPHRITIS RAPIDLY PROGRESSIVE [None]
  - HYPERHIDROSIS [None]
  - NEPHRITIS INTERSTITIAL [None]
  - PNEUMONITIS [None]
  - PROTHROMBIN TIME PROLONGED [None]
  - PYREXIA [None]
  - RENAL FAILURE ACUTE [None]
  - RENAL NECROSIS [None]
  - RENAL VASCULITIS [None]
  - VASCULITIS [None]
